FAERS Safety Report 7017970-8 (Version None)
Quarter: 2010Q3

REPORT INFORMATION
  Report Type: 
  Country: None (occurrence: None)
  Receive Date: 20100923
  Receipt Date: 20100914
  Transmission Date: 20110219
  Serious: Yes (Hospitalization)
  Sender: FDA-Public Use
  Company Number: TRP_07253_2010

PATIENT
  Age: 12 Year
  Sex: Male

DRUGS (1)
  1. AMPHOTERICIN B [Suspect]
     Indication: PARACOCCIDIOIDES INFECTION
     Dosage: (1 MG/KG PER DAY FOR 0 YEARS)
     Dates: start: 20070101, end: 20070101

REACTIONS (5)
  - GENERAL PHYSICAL HEALTH DETERIORATION [None]
  - LYMPHADENOPATHY [None]
  - PURULENCE [None]
  - PYREXIA [None]
  - SECRETION DISCHARGE [None]
